FAERS Safety Report 9403158 (Version 1)
Quarter: 2013Q3

REPORT INFORMATION
  Report Type: Spontaneous
  Country: US (occurrence: None)
  Receive Date: 20130715
  Receipt Date: 20130715
  Transmission Date: 20140515
  Serious: Yes (Other)
  Sender: FDA-Public Use
  Company Number: None

PATIENT
  Sex: Female
  Weight: 38.56 kg

DRUGS (2)
  1. BUDESONIDE [Suspect]
     Indication: ASTHMA
     Dosage: VIA NEBULIZER
     Route: 055
     Dates: start: 20110404
  2. BUDESONIDE [Suspect]
     Dates: start: 20111118

REACTIONS (3)
  - Dyspnoea [None]
  - Heart rate increased [None]
  - Product substitution issue [None]
